APPROVED DRUG PRODUCT: QUINIDINE SULFATE
Active Ingredient: QUINIDINE SULFATE
Strength: 200MG
Dosage Form/Route: TABLET;ORAL
Application: A088072 | Product #002
Applicant: EPIC PHARMA LLC
Approved: Approved Prior to Jan 1, 1982 | RLD: No | RS: Yes | Type: RX